FAERS Safety Report 5526320-5 (Version None)
Quarter: 2007Q4

REPORT INFORMATION
  Report Type: 
  Country: None (occurrence: None)
  Receive Date: 20071127
  Receipt Date: 20071119
  Transmission Date: 20080405
  Serious: Yes (Other)
  Sender: FDA-Public Use
  Company Number: PHHY2007AR00531

PATIENT
  Age: 79 Year
  Sex: Female

DRUGS (1)
  1. RECLAST [Suspect]
     Dosage: 1 ANNUAL AMP.

REACTIONS (3)
  - BLISTER [None]
  - RASH [None]
  - SWELLING FACE [None]
